FAERS Safety Report 12810459 (Version 1)
Quarter: 2016Q4

REPORT INFORMATION
  Report Type: Spontaneous
  Country: US (occurrence: US)
  Receive Date: 20161005
  Receipt Date: 20161005
  Transmission Date: 20170207
  Serious: Yes (Disabling)
  Sender: FDA-Public Use
  Company Number: US-BEH-2016073845

PATIENT
  Weight: 107.48 kg

DRUGS (35)
  1. CIPRO [Concomitant]
     Active Substance: CIPROFLOXACIN HYDROCHLORIDE
  2. LECITHIN [Concomitant]
     Active Substance: LECITHIN
  3. QVAR [Concomitant]
     Active Substance: BECLOMETHASONE DIPROPIONATE
  4. DIPHENHYDRAMINE. [Concomitant]
     Active Substance: DIPHENHYDRAMINE
  5. METFORMIN [Concomitant]
     Active Substance: METFORMIN HYDROCHLORIDE
  6. DICYCLOMINE                        /00068601/ [Concomitant]
     Active Substance: DICYCLOMINE HYDROCHLORIDE
  7. CYCLOBENZAPRINE [Concomitant]
     Active Substance: CYCLOBENZAPRINE
  8. NYSTATIN. [Concomitant]
     Active Substance: NYSTATIN
  9. DOCUSATE SOD [Concomitant]
  10. GARLIC                             /01570501/ [Concomitant]
     Active Substance: GARLIC
  11. EPIPEN [Concomitant]
     Active Substance: EPINEPHRINE
  12. LMX                                /00033401/ [Concomitant]
  13. ECHINACEA                          /01323501/ [Concomitant]
     Active Substance: ECHINACEA PURPUREA
  14. ZEMAIRA [Suspect]
     Active Substance: .ALPHA.1-PROTEINASE INHIBITOR HUMAN
     Indication: ALPHA-1 ANTI-TRYPSIN DEFICIENCY
     Dosage: 60 MG/KG, UNK
     Route: 042
     Dates: start: 20091223
  15. SODIUM CHLORIDE. [Concomitant]
     Active Substance: SODIUM CHLORIDE
  16. CRANBERRY                          /01512301/ [Concomitant]
     Active Substance: CRANBERRY
  17. DIOVAN [Concomitant]
     Active Substance: VALSARTAN
  18. HYDROCODONE BITARTRATE AND ACETAMINOPHEN [Concomitant]
     Active Substance: ACETAMINOPHEN\HYDROCODONE BITARTRATE
  19. VITAMIN B [Concomitant]
     Active Substance: VITAMIN B
  20. BILBERRY                           /01397601/ [Concomitant]
     Active Substance: BILBERRY
  21. FENTANYL. [Concomitant]
     Active Substance: FENTANYL
  22. KEFLEX [Concomitant]
     Active Substance: CEPHALEXIN
  23. MUCINEX [Concomitant]
     Active Substance: GUAIFENESIN
  24. VITAMIN E                          /00110501/ [Concomitant]
     Active Substance: TOCOPHEROL
  25. HYDROMORPHONE-APAP [Concomitant]
  26. HYDROXYZINE [Concomitant]
     Active Substance: HYDROXYZINE\HYDROXYZINE HYDROCHLORIDE
  27. HAWTHORN                           /01349301/ [Concomitant]
     Active Substance: HAWTHORN LEAF WITH FLOWER
  28. MAGNESIUM [Concomitant]
     Active Substance: MAGNESIUM
  29. XOPENEX [Concomitant]
     Active Substance: LEVALBUTEROL HYDROCHLORIDE
  30. CETIRIZINE [Concomitant]
     Active Substance: CETIRIZINE HYDROCHLORIDE
  31. COENZYME Q10 [Concomitant]
     Active Substance: UBIDECARENONE
  32. IBUPROFEN. [Concomitant]
     Active Substance: IBUPROFEN
  33. CALCIUM+VITAMIN D3 [Concomitant]
  34. CYMBALTA [Concomitant]
     Active Substance: DULOXETINE HYDROCHLORIDE
  35. RANITIDINE. [Concomitant]
     Active Substance: RANITIDINE

REACTIONS (4)
  - Osteoarthritis [Unknown]
  - Intervertebral disc degeneration [Unknown]
  - Mobility decreased [Unknown]
  - Muscular weakness [Unknown]
